FAERS Safety Report 17618192 (Version 1)
Quarter: 2020Q2

REPORT INFORMATION
  Report Type: Spontaneous
  Country: DE (occurrence: DE)
  Receive Date: 20200402
  Receipt Date: 20200402
  Transmission Date: 20200713
  Serious: Yes (Other)
  Sender: FDA-Public Use
  Company Number: DE-DSJP-DSE-2020-110405

PATIENT

DRUGS (3)
  1. LIXIANA [Suspect]
     Active Substance: EDOXABAN TOSYLATE
     Indication: CARDIAC VALVE DISEASE
  2. LAMOTRIGIN [Concomitant]
     Active Substance: LAMOTRIGINE
     Indication: EPILEPSY
     Dosage: UNK
  3. LIXIANA [Suspect]
     Active Substance: EDOXABAN TOSYLATE
     Indication: CARDIAC OPERATION
     Dosage: 60 MG, QD
     Route: 048
     Dates: start: 2018

REACTIONS (4)
  - Off label use [Unknown]
  - Eye pain [Unknown]
  - Migraine [Unknown]
  - Blindness [Unknown]

NARRATIVE: CASE EVENT DATE: 2018
